FAERS Safety Report 21996636 (Version 1)
Quarter: 2023Q1

REPORT INFORMATION
  Report Type: Spontaneous
  Country: US (occurrence: US)
  Receive Date: 20230215
  Receipt Date: 20230215
  Transmission Date: 20230417
  Serious: No
  Sender: FDA-Public Use
  Company Number: US-ALLERGAN-2240764US

PATIENT
  Sex: Female

DRUGS (2)
  1. VILAZODONE HYDROCHLORIDE [Suspect]
     Active Substance: VILAZODONE HYDROCHLORIDE
     Indication: Depression
     Dosage: 10 MG
  2. VILAZODONE HYDROCHLORIDE [Suspect]
     Active Substance: VILAZODONE HYDROCHLORIDE
     Indication: Anxiety
     Dosage: 10 MG

REACTIONS (5)
  - Myalgia [Unknown]
  - Headache [Unknown]
  - Mood altered [Unknown]
  - Irritability [Unknown]
  - Therapeutic response decreased [Unknown]
